FAERS Safety Report 14454772 (Version 2)
Quarter: 2018Q2

REPORT INFORMATION
  Report Type: Spontaneous
  Country: US (occurrence: US)
  Receive Date: 20180129
  Receipt Date: 20180607
  Transmission Date: 20180711
  Serious: Yes (Hospitalization)
  Sender: FDA-Public Use
  Company Number: US-DSJP-DSU-2017-137185

PATIENT

DRUGS (1)
  1. BENICAR HCT [Suspect]
     Active Substance: HYDROCHLOROTHIAZIDE\OLMESARTAN MEDOXOMIL
     Indication: HYPERTENSION
     Dosage: 20-12.5MG, QD
     Route: 048
     Dates: start: 20080101, end: 20140201

REACTIONS (3)
  - Ileus [Recovered/Resolved]
  - Sprue-like enteropathy [Recovered/Resolved]
  - Diverticular perforation [Recovering/Resolving]

NARRATIVE: CASE EVENT DATE: 20080601
